FAERS Safety Report 7861611-4 (Version None)
Quarter: 2011Q4

REPORT INFORMATION
  Report Type: 
  Country: None (occurrence: None)
  Receive Date: 20111027
  Receipt Date: 20111025
  Transmission Date: 20120403
  Serious: Yes (Life-Threatening, Other)
  Sender: FDA-Public Use
  Company Number: JP-PFIZER INC-2011116757

PATIENT
  Age: 50 Year
  Sex: Female
  Weight: 56 kg

DRUGS (2)
  1. LYRICA [Suspect]
     Indication: HYPOAESTHESIA
     Dosage: 50 MG/DAY
     Dates: start: 20110326, end: 20110101
  2. LYRICA [Suspect]
     Dosage: 75 MG/DAY
     Dates: start: 20110101, end: 20110409

REACTIONS (6)
  - PARAESTHESIA [None]
  - OEDEMA MOUTH [None]
  - DYSGEUSIA [None]
  - FEELING ABNORMAL [None]
  - DYSPHAGIA [None]
  - PHARYNGEAL OEDEMA [None]
